FAERS Safety Report 9685345 (Version 4)
Quarter: 2014Q2

REPORT INFORMATION
  Report Type: Spontaneous
  Country: JP (occurrence: JP)
  Receive Date: 20131113
  Receipt Date: 20140522
  Transmission Date: 20141212
  Serious: Yes (Death, Other)
  Sender: FDA-Public Use
  Company Number: PHHY2012JP039126

PATIENT
  Age: 35 Year
  Sex: Male
  Weight: 64 kg

DRUGS (11)
  1. AFINITOR [Suspect]
     Indication: PANCREATIC NEUROENDOCRINE TUMOUR
     Dosage: 10 MG, DAILY
     Route: 048
     Dates: start: 20120418, end: 20120503
  2. AFINITOR [Suspect]
     Dosage: 5 MG, DAILY
     Route: 048
     Dates: start: 20120525, end: 20121115
  3. AFINITOR [Suspect]
     Dosage: 10 MG, DAILY
     Route: 048
     Dates: start: 20121116, end: 20121227
  4. LENDORMIN [Concomitant]
     Dosage: 0.25 MG
     Route: 048
  5. PARIET [Concomitant]
     Dosage: 20 MG
     Route: 048
  6. MIYA BM [Concomitant]
     Dosage: 2 DF
     Route: 048
  7. BAKTAR [Concomitant]
     Dosage: 1 DF
     Route: 048
  8. OXYCONTIN [Concomitant]
     Dosage: 80 MG
     Route: 048
  9. MAGLAX [Concomitant]
     Dosage: 990 MG
     Route: 048
  10. CALONAL [Concomitant]
     Dosage: 600 MG
     Route: 048
  11. METASTRON [Concomitant]
     Dosage: UNK UKN, UNK
     Dates: start: 200910

REACTIONS (9)
  - Death [Fatal]
  - Platelet count decreased [Recovered/Resolved]
  - Blood glucose increased [Unknown]
  - Blood albumin decreased [Unknown]
  - Back pain [Not Recovered/Not Resolved]
  - Blood phosphorus decreased [Unknown]
  - Pancreatic neuroendocrine tumour [Unknown]
  - Malignant neoplasm progression [Unknown]
  - Oedema peripheral [Recovering/Resolving]
